FAERS Safety Report 15149371 (Version 3)
Quarter: 2018Q3

REPORT INFORMATION
  Report Type: Spontaneous
  Country: JP (occurrence: JP)
  Receive Date: 20180716
  Receipt Date: 20180808
  Transmission Date: 20181010
  Serious: Yes (Hospitalization)
  Sender: FDA-Public Use
  Company Number: JP-JNJFOC-20180708789

PATIENT
  Age: 71 Year
  Sex: Male
  Weight: 56.4 kg

DRUGS (10)
  1. TREMFYA [Suspect]
     Active Substance: GUSELKUMAB
     Indication: PUSTULAR PSORIASIS
     Dosage: 100 MG
     Route: 058
     Dates: start: 20180621, end: 20180621
  2. INSULIN GLARGINE [Concomitant]
     Active Substance: INSULIN GLARGINE
     Indication: DIABETES MELLITUS
     Route: 058
  3. TREMFYA [Suspect]
     Active Substance: GUSELKUMAB
     Indication: PUSTULAR PSORIASIS
     Route: 058
     Dates: start: 20180719
  4. AZILVA [Concomitant]
     Active Substance: AZILSARTAN KAMEDOXOMIL
     Indication: HYPERTENSION
     Route: 048
  5. BACTAR [Concomitant]
     Active Substance: SULFAMERAZINE\TRIMETHOPRIM
     Indication: INTERSTITIAL LUNG DISEASE
     Route: 048
  6. HUMALOG [Concomitant]
     Active Substance: INSULIN LISPRO
     Indication: DIABETES MELLITUS
     Route: 058
  7. CLOPIDOGREL [Concomitant]
     Active Substance: CLOPIDOGREL BISULFATE
     Indication: HYPERTENSION
     Route: 048
  8. AMLODIPINE [Concomitant]
     Active Substance: AMLODIPINE BESYLATE
     Indication: HYPERTENSION
     Route: 048
  9. PREDNISOLONE. [Concomitant]
     Active Substance: PREDNISOLONE
     Indication: INTERSTITIAL LUNG DISEASE
     Route: 048
  10. NEXIUM [Concomitant]
     Active Substance: ESOMEPRAZOLE MAGNESIUM
     Indication: INTERSTITIAL LUNG DISEASE
     Route: 048

REACTIONS (1)
  - Pneumonia bacterial [Recovered/Resolved]

NARRATIVE: CASE EVENT DATE: 20180702
